FAERS Safety Report 8158450-6 (Version None)
Quarter: 2012Q1

REPORT INFORMATION
  Report Type: 
  Country: None (occurrence: None)
  Receive Date: 20120223
  Receipt Date: 20120217
  Transmission Date: 20120608
  Serious: No
  Sender: FDA-Public Use
  Company Number: US-PFIZER INC-2012045223

PATIENT

DRUGS (2)
  1. XANAX XR [Suspect]
     Indication: PANIC DISORDER
     Dosage: UNK
  2. XANAX [Suspect]
     Indication: PANIC DISORDER
     Dosage: UNK

REACTIONS (2)
  - PANIC ATTACK [None]
  - INSOMNIA [None]
